FAERS Safety Report 10139495 (Version 2)
Quarter: 2015Q1

REPORT INFORMATION
  Report Type: Other
  Country: US (occurrence: US)
  Receive Date: 20140429
  Receipt Date: 20150223
  Transmission Date: 20150720
  Serious: Yes (Hospitalization, Other)
  Sender: FDA-Public Use
  Company Number: US-GSKPPD-2014GSK039725

PATIENT
  Age: 39 Year
  Sex: Male

DRUGS (4)
  1. HYDRALAZINE [Concomitant]
     Active Substance: HYDRALAZINE HYDROCHLORIDE
     Dosage: EVERY 15 MINUTES AS NEEDED TO KEEP THE MEAN ARTERIAL PRESSURE LESS THAN 130 AND THE SYSTOLIC BLOOD P
     Route: 042
     Dates: start: 20021218, end: 20030109
  2. LABETALOL [Concomitant]
     Active Substance: LABETALOL\LABETALOL HYDROCHLORIDE
     Dosage: EVERY 15 MINUTES AS NEEDED
     Route: 042
     Dates: start: 20021218, end: 20030109
  3. AVANDIA [Suspect]
     Active Substance: ROSIGLITAZONE MALEATE
     Indication: DIABETES MELLITUS
     Dosage: AVANDIA WAS NOT LISTED AMONG THE PATIENTS RECORDS REVIEWED
     Route: 048
  4. NIMODIPINE. [Concomitant]
     Active Substance: NIMODIPINE
     Dates: start: 20021218, end: 20030109

REACTIONS (1)
  - Subarachnoid haemorrhage [Recovered/Resolved]

NARRATIVE: CASE EVENT DATE: 20021218
